FAERS Safety Report 5216571-1 (Version None)
Quarter: 2007Q1

REPORT INFORMATION
  Report Type: 
  Country: None (occurrence: None)
  Receive Date: 20061130
  Receipt Date: 20060928
  Transmission Date: 20070707
  Serious: Yes (Hospitalization, Other)
  Sender: FDA-Public Use
  Company Number: US200608003015

PATIENT
  Age: 56 Year
  Sex: Female
  Weight: 90.7 kg

DRUGS (4)
  1. ZYPREXA [Suspect]
     Dosage: 5 MG,
     Dates: start: 19960101
  2. PAXIL (PAROXETINE HYDRODROCHLORIDE) [Concomitant]
  3. ATENOLOL [Concomitant]
  4. PREDNISOLONE [Concomitant]

REACTIONS (6)
  - BLOOD CHOLESTEROL INCREASED [None]
  - CARDIAC FAILURE CONGESTIVE [None]
  - DIABETES MELLITUS [None]
  - HYPERTENSION [None]
  - METABOLIC DISORDER [None]
  - PANCREATITIS [None]
